FAERS Safety Report 6924987-8 (Version None)
Quarter: 2010Q3

REPORT INFORMATION
  Report Type: 
  Country: None (occurrence: None)
  Receive Date: 20100816
  Receipt Date: 20100812
  Transmission Date: 20110219
  Serious: Yes (Death)
  Sender: FDA-Public Use
  Company Number: DE-JNJFOC-20100803633

PATIENT
  Sex: Male

DRUGS (2)
  1. IMODIUM AD [Suspect]
     Indication: DIARRHOEA
     Dosage: 1 CAPLSULE 2 TIMES A DAY
     Route: 048
  2. ASPIRIN [Concomitant]
     Indication: HEADACHE

REACTIONS (1)
  - COMPLETED SUICIDE [None]
